FAERS Safety Report 9008318 (Version 2)
Quarter: 2013Q1

REPORT INFORMATION
  Report Type: Spontaneous
  Country: US (occurrence: None)
  Receive Date: 20121227
  Receipt Date: 20130204
  Transmission Date: 20140127
  Serious: Yes (Death, Other)
  Sender: FDA-Public Use
  Company Number: TPA2012A10134

PATIENT
  Age: 73 Year
  Sex: Male

DRUGS (5)
  1. ACTOS [Suspect]
     Indication: TYPE 2 DIABETES MELLITUS
     Dates: start: 200107, end: 20060630
  2. METFORMIN (METFORMIN) [Concomitant]
  3. AVANDIA (ROSIGLITAZONE MALEATE) [Concomitant]
  4. DIABETA (GLYBURIDE) (GLIBENCLAMIDE) [Concomitant]
  5. AMARYL (GLIMEPIRIDE) (GLIMEPIRIDE) [Concomitant]

REACTIONS (1)
  - Bladder cancer [None]
